FAERS Safety Report 7552240-0 (Version None)
Quarter: 2011Q2

REPORT INFORMATION
  Report Type: 
  Country: None (occurrence: None)
  Receive Date: 20110616
  Receipt Date: 20040130
  Transmission Date: 20111010
  Serious: Yes (Hospitalization, Disabling)
  Sender: FDA-Public Use
  Company Number: PHHO2003JP16660

PATIENT
  Age: 63 Year
  Sex: Male

DRUGS (4)
  1. DIOVAN [Suspect]
     Dosage: 40 MG, QD
     Route: 048
     Dates: start: 20040107
  2. NORVASC [Concomitant]
     Indication: HYPERTENSION
     Dosage: 5 MG, UNK
     Route: 048
     Dates: start: 20010305, end: 20031212
  3. DIOVAN [Suspect]
     Dosage: UNK
     Dates: start: 20031212, end: 20040106
  4. DIOVAN [Suspect]
     Indication: HYPERTENSION
     Dosage: 40 MG, QD
     Route: 048
     Dates: start: 20030115, end: 20031212

REACTIONS (2)
  - CEREBRAL INFARCTION [None]
  - DYSARTHRIA [None]
